FAERS Safety Report 21715960 (Version 1)
Quarter: 2022Q4

REPORT INFORMATION
  Report Type: Spontaneous
  Country: US (occurrence: None)
  Receive Date: 20221211
  Receipt Date: 20221211
  Transmission Date: 20230113
  Serious: Yes (Hospitalization)
  Sender: FDA-Public Use
  Company Number: None

PATIENT
  Sex: Female
  Weight: 9.98 kg

DRUGS (3)
  1. BLEOMYCIN [Suspect]
     Active Substance: BLEOMYCIN SULFATE
  2. CARBOPLATIN [Concomitant]
  3. ETOPSODIE (VP-16) [Concomitant]

REACTIONS (5)
  - Febrile neutropenia [None]
  - Hydronephrosis [None]
  - Ureteric obstruction [None]
  - Mass [None]
  - Pubic pain [None]

NARRATIVE: CASE EVENT DATE: 20221202
